FAERS Safety Report 5731313-9 (Version None)
Quarter: 2008Q2

REPORT INFORMATION
  Report Type: 
  Country: None (occurrence: None)
  Receive Date: 20080505
  Receipt Date: 20080425
  Transmission Date: 20081010
  Serious: Yes (Hospitalization)
  Sender: FDA-Public Use
  Company Number: 2008010754

PATIENT
  Age: 19 Year
  Sex: Male
  Weight: 61.2356 kg

DRUGS (1)
  1. SUDAFED PE SEVERE COLD CAPLET (DIPHENHYDRAMINE, PHENYLEPHRINE, ACETAMI [Suspect]
     Indication: NASOPHARYNGITIS
     Dosage: RECOMMENDED DOSAGE, ORAL
     Route: 048
     Dates: start: 20080409, end: 20080411

REACTIONS (10)
  - ABNORMAL BEHAVIOUR [None]
  - AGITATION [None]
  - ANXIETY [None]
  - BLOOD CREATINE PHOSPHOKINASE INCREASED [None]
  - DELUSION [None]
  - HALLUCINATION [None]
  - INCORRECT DOSE ADMINISTERED [None]
  - INSOMNIA [None]
  - PSYCHOTIC DISORDER [None]
  - THINKING ABNORMAL [None]
